FAERS Safety Report 12249878 (Version 5)
Quarter: 2016Q3

REPORT INFORMATION
  Report Type: Report from Study
  Country: FR (occurrence: FR)
  Receive Date: 20160408
  Receipt Date: 20160722
  Transmission Date: 20161109
  Serious: Yes (Hospitalization, Other)
  Sender: FDA-Public Use
  Company Number: FR-ARIAD PHARMACEUTICALS, INC-2016FR006313

PATIENT
  Age: 75 Year
  Sex: Male
  Weight: 67 kg

DRUGS (26)
  1. PONATINIB [Suspect]
     Active Substance: PONATINIB
     Indication: CHRONIC MYELOID LEUKAEMIA
     Dosage: 45 MG, QD
     Route: 048
     Dates: start: 20110720, end: 20110815
  2. PONATINIB [Suspect]
     Active Substance: PONATINIB
     Dosage: 15 MG, WEEKLY FOLLOWED BY 2X/WEEK
     Route: 048
     Dates: start: 20130527, end: 20140126
  3. PONATINIB [Suspect]
     Active Substance: PONATINIB
     Dosage: 15 MG,2XWEEK THEN 3X/WEEK
     Route: 048
     Dates: start: 20141222, end: 20160321
  4. ZOPICLONE [Concomitant]
     Active Substance: ZOPICLONE
     Indication: INSOMNIA
     Dosage: UNK
     Route: 048
     Dates: start: 20150616
  5. DAFALGAN [Concomitant]
     Active Substance: ACETAMINOPHEN
     Indication: PRODUCT USED FOR UNKNOWN INDICATION
     Dosage: UNK, PRN
  6. PONATINIB [Suspect]
     Active Substance: PONATINIB
     Dosage: 15 MG, QD
     Route: 048
     Dates: start: 20120424, end: 20120521
  7. PONATINIB [Suspect]
     Active Substance: PONATINIB
     Dosage: 15 MG, 2X/MONTH
     Route: 048
     Dates: start: 20130401, end: 20130526
  8. PONATINIB [Suspect]
     Active Substance: PONATINIB
     Dosage: 15 MG, 3X/WEEK
     Route: 048
     Dates: start: 20141027, end: 20141221
  9. DICLOFENAC DIETHYLAMINE [Concomitant]
     Active Substance: DICLOFENAC DIETHYLAMINE
     Indication: ARTHRALGIA
     Dosage: UNK
     Route: 061
     Dates: start: 20151201
  10. PONATINIB [Suspect]
     Active Substance: PONATINIB
     Dosage: 15 MG, 2X/WEEK
     Route: 048
     Dates: start: 20121126, end: 20121203
  11. ADVIL [Concomitant]
     Active Substance: IBUPROFEN
     Indication: HEADACHE
     Dosage: UNK
     Route: 048
     Dates: start: 20110720
  12. LASILIX [Concomitant]
     Active Substance: FUROSEMIDE
     Indication: CARDIAC FAILURE
     Dosage: UNK
     Route: 048
     Dates: start: 200906
  13. BISOCE [Concomitant]
     Active Substance: BISOPROLOL
     Indication: PRODUCT USED FOR UNKNOWN INDICATION
     Dosage: 2.5 UNK, UNK
  14. PONATINIB [Suspect]
     Active Substance: PONATINIB
     Dosage: 30 MG, QD
     Route: 048
     Dates: start: 20120124, end: 20120219
  15. PONATINIB [Suspect]
     Active Substance: PONATINIB
     Dosage: 15 MG, QD
     Route: 048
     Dates: start: 20120523, end: 20120523
  16. CARDENSIEL [Concomitant]
     Active Substance: BISOPROLOL FUMARATE
     Indication: CARDIAC FAILURE
     Dosage: UNK
     Route: 048
     Dates: start: 20090625, end: 20160406
  17. PONATINIB [Suspect]
     Active Substance: PONATINIB
     Dosage: 45 MG, QD
     Route: 048
     Dates: start: 20111005, end: 20111107
  18. PONATINIB [Suspect]
     Active Substance: PONATINIB
     Dosage: 15 MG, QD
     Route: 048
     Dates: start: 20130304, end: 20130304
  19. AMLODIPINE [Concomitant]
     Active Substance: AMLODIPINE BESYLATE
     Indication: HYPERTENSION
     Dosage: UNK
     Route: 048
     Dates: start: 20141125, end: 20160406
  20. PONATINIB [Suspect]
     Active Substance: PONATINIB
     Dosage: 15 MG, QD
     Route: 048
     Dates: start: 20121210, end: 20121210
  21. PONATINIB [Suspect]
     Active Substance: PONATINIB
     Dosage: 15 MG,2XWEEK FOLLOWED BY 3X/WEEK
     Route: 048
     Dates: start: 20140127, end: 20141026
  22. PONATINIB [Suspect]
     Active Substance: PONATINIB
     Dosage: 15 MG, QD
     Route: 048
     Dates: start: 20121217, end: 20121217
  23. JOSIR [Concomitant]
     Active Substance: TAMSULOSIN
     Indication: PRODUCT USED FOR UNKNOWN INDICATION
     Dosage: 0.4 UNK, UNK
  24. PONATINIB [Suspect]
     Active Substance: PONATINIB
     Dosage: 15 MG, 2X/WEEK
     Route: 048
     Dates: start: 20120809, end: 20120910
  25. PONATINIB [Suspect]
     Active Substance: PONATINIB
     Dosage: 15 MG, 2X/WEEK
     Route: 048
     Dates: start: 20160401, end: 20160516
  26. COVERSYL [Concomitant]
     Active Substance: PERINDOPRIL
     Indication: CARDIAC FAILURE
     Dosage: UNK
     Route: 048
     Dates: start: 200906, end: 20160406

REACTIONS (5)
  - Spinal column injury [Recovered/Resolved]
  - Pericardial effusion [Not Recovered/Not Resolved]
  - Head injury [Recovered/Resolved]
  - Syncope [Recovered/Resolved]
  - Atrial fibrillation [Not Recovered/Not Resolved]

NARRATIVE: CASE EVENT DATE: 20160314
